FAERS Safety Report 19099714 (Version 1)
Quarter: 2021Q2

REPORT INFORMATION
  Report Type: Spontaneous
  Country: US (occurrence: US)
  Receive Date: 20210407
  Receipt Date: 20210407
  Transmission Date: 20210717
  Serious: Yes (Other)
  Sender: FDA-Public Use
  Company Number: US-PTC THERAPEUTICS, INC.-US-2020PTC000370

PATIENT
  Sex: Male

DRUGS (2)
  1. EMFLAZA [Suspect]
     Active Substance: DEFLAZACORT
     Indication: BECKER^S MUSCULAR DYSTROPHY
     Dosage: 30 MG, QD (TAKE ONE 18MG TABLET W/ 30MG TABLET DAILY, 9 DAYS ON AND 9 DAYS OFF)
     Route: 048
  2. EMFLAZA [Suspect]
     Active Substance: DEFLAZACORT
     Indication: DUCHENNE MUSCULAR DYSTROPHY
     Dosage: 18 MG, QD (TAKE ONE 18MG TABLET W/ 30MG TABLET DAILY, 9 DAYS ON AND 9 DAYS OFF)
     Route: 048

REACTIONS (2)
  - Cataract [Unknown]
  - Weight increased [Unknown]
